FAERS Safety Report 20553234 (Version 1)
Quarter: 2022Q1

REPORT INFORMATION
  Report Type: Report from Study
  Country: FR (occurrence: FR)
  Receive Date: 20220304
  Receipt Date: 20220304
  Transmission Date: 20220423
  Serious: Yes (Hospitalization)
  Sender: FDA-Public Use
  Company Number: FR-SERVIER-S22002085

PATIENT

DRUGS (7)
  1. PEGASPARGASE [Suspect]
     Active Substance: PEGASPARGASE
     Indication: Acute lymphocytic leukaemia
     Dosage: 1800 IU ON D6
     Route: 042
     Dates: start: 20220109, end: 20220109
  2. TN UNSPECIFIED [Concomitant]
     Indication: Acute lymphocytic leukaemia
     Dosage: 3000 MG ON D1 AND D2
     Route: 042
     Dates: start: 20220104, end: 20220105
  3. TN UNSPECIFIED [Concomitant]
     Dosage: 30 MG  ON D5
     Route: 037
     Dates: start: 20220108, end: 20220108
  4. TN UNSPECIFIED [Concomitant]
     Indication: Acute lymphocytic leukaemia
     Dosage: 15 MG ON D1 TO D6
     Route: 048
     Dates: start: 20220104, end: 20220109
  5. TN UNSPECIFIED [Concomitant]
     Indication: Acute lymphocytic leukaemia
     Dosage: 108 MG ON D3, D4 AND D5
     Route: 042
     Dates: start: 20220106, end: 20220108
  6. TN UNSPECIFIED [Concomitant]
     Indication: Acute lymphocytic leukaemia
     Dosage: 12 MG ON D5
     Route: 037
     Dates: start: 20220108, end: 20220108
  7. TN UNSPECIFIED [Concomitant]
     Indication: Acute lymphocytic leukaemia
     Dosage: 15 MG ON D3
     Route: 037
     Dates: start: 20220108, end: 20220108

REACTIONS (1)
  - Corynebacterium sepsis [Recovered/Resolved]

NARRATIVE: CASE EVENT DATE: 20220115
